FAERS Safety Report 9499103 (Version 2)
Quarter: 2013Q3

REPORT INFORMATION
  Report Type: Spontaneous
  Country: US (occurrence: US)
  Receive Date: 20130904
  Receipt Date: 20130904
  Transmission Date: 20140515
  Serious: Yes (Hospitalization)
  Sender: FDA-Public Use
  Company Number: US-GILEAD-2013-0081668

PATIENT
  Sex: Female

DRUGS (4)
  1. LETAIRIS [Suspect]
     Indication: PORTOPULMONARY HYPERTENSION
     Dosage: 5 MG, QD
     Dates: start: 20130525
  2. SILDENAFIL [Concomitant]
  3. REMODULIN [Concomitant]
  4. DILTIAZEM [Concomitant]

REACTIONS (4)
  - Overdose [Unknown]
  - Hypotension [Unknown]
  - Dyspnoea [Unknown]
  - Fluid overload [Unknown]
